FAERS Safety Report 13387025 (Version 1)
Quarter: 2017Q1

REPORT INFORMATION
  Report Type: Spontaneous
  Country: US (occurrence: US)
  Receive Date: 20170330
  Receipt Date: 20170330
  Transmission Date: 20170429
  Serious: No
  Sender: FDA-Public Use
  Company Number: US-MYLANLABS-2016M1011085

PATIENT
  Sex: Female
  Weight: 53.61 kg

DRUGS (1)
  1. TAMOXIFEN [Suspect]
     Active Substance: TAMOXIFEN
     Indication: NEOPLASM PROPHYLAXIS
     Dosage: UNK, QD
     Route: 048
     Dates: start: 2005, end: 2006

REACTIONS (2)
  - Mouth ulceration [Recovered/Resolved]
  - Endometrial hyperplasia [Recovered/Resolved with Sequelae]
